FAERS Safety Report 12629838 (Version 1)
Quarter: 2016Q3

REPORT INFORMATION
  Report Type: Spontaneous
  Country: US (occurrence: US)
  Receive Date: 20160808
  Receipt Date: 20160808
  Transmission Date: 20161109
  Serious: Yes (Other)
  Sender: FDA-Public Use
  Company Number: US-SA-2016SA141504

PATIENT
  Age: 64 Year
  Sex: Male

DRUGS (2)
  1. SOLOSTAR [Concomitant]
     Active Substance: DEVICE
  2. LANTUS SOLOSTAR [Suspect]
     Active Substance: INSULIN GLARGINE
     Indication: TYPE 2 DIABETES MELLITUS
     Dosage: DOSE:50 UNIT(S)
     Route: 065

REACTIONS (8)
  - Musculoskeletal discomfort [Recovering/Resolving]
  - Lacrimation increased [Unknown]
  - Visual impairment [Unknown]
  - Facial paralysis [Unknown]
  - Headache [Recovering/Resolving]
  - Product use issue [Unknown]
  - Lip swelling [Recovering/Resolving]
  - Intentional product misuse [Unknown]
